FAERS Safety Report 18794889 (Version 3)
Quarter: 2021Q1

REPORT INFORMATION
  Report Type: Spontaneous
  Country: US (occurrence: US)
  Receive Date: 20210127
  Receipt Date: 20210208
  Transmission Date: 20210419
  Serious: Yes (Hospitalization, Other)
  Sender: FDA-Public Use
  Company Number: US-TEVA-2021-US-1872461

PATIENT
  Age: 42 Year
  Sex: Female

DRUGS (8)
  1. TREPROSTINIL TEVA [Suspect]
     Active Substance: TREPROSTINIL
     Indication: PULMONARY ARTERIAL HYPERTENSION
     Dosage: 55.1 NANOGRAM DAILY;
     Route: 042
     Dates: start: 20190724
  2. ORENITRAM [Suspect]
     Active Substance: TREPROSTINIL
     Indication: PULMONARY ARTERIAL HYPERTENSION
     Dosage: 1.5 MILLIGRAM DAILY;
     Route: 065
     Dates: start: 20201224
  3. ORENITRAM [Suspect]
     Active Substance: TREPROSTINIL
     Dosage: 9 MILLIGRAM DAILY;
     Route: 065
     Dates: start: 20190724
  4. TREPROSTINIL TEVA [Suspect]
     Active Substance: TREPROSTINIL
     Dosage: INTRAVASCULAR
     Route: 042
     Dates: start: 201910
  5. REMODULIN [Suspect]
     Active Substance: TREPROSTINIL
     Route: 042
  6. ADEMPAS [Suspect]
     Active Substance: RIOCIGUAT
     Indication: PULMONARY ARTERIAL HYPERTENSION
     Route: 065
     Dates: start: 20160630
  7. REMODULIN [Suspect]
     Active Substance: TREPROSTINIL
     Indication: PULMONARY ARTERIAL HYPERTENSION
     Route: 058
  8. AMBRISENTAN [Suspect]
     Active Substance: AMBRISENTAN
     Indication: PULMONARY ARTERIAL HYPERTENSION
     Dosage: 10 MILLIGRAM DAILY;
     Route: 065
     Dates: start: 20160824

REACTIONS (11)
  - Nausea [Unknown]
  - Device related infection [Not Recovered/Not Resolved]
  - Device occlusion [Unknown]
  - Headache [Unknown]
  - Musculoskeletal chest pain [Unknown]
  - Staphylococcal infection [Not Recovered/Not Resolved]
  - Systemic lupus erythematosus [Not Recovered/Not Resolved]
  - Pain in jaw [Unknown]
  - Pain [Unknown]
  - Pleuritic pain [Unknown]
  - Arthralgia [Unknown]

NARRATIVE: CASE EVENT DATE: 202012
